FAERS Safety Report 9462242 (Version 3)
Quarter: 2013Q4

REPORT INFORMATION
  Report Type: Spontaneous
  Country: US (occurrence: US)
  Receive Date: 20130816
  Receipt Date: 20131021
  Transmission Date: 20140711
  Serious: Yes (Life-Threatening, Hospitalization, Other)
  Sender: FDA-Public Use
  Company Number: US-GLAXOSMITHKLINE-A1010790A

PATIENT
  Age: 41 Year
  Sex: Female
  Weight: 113.6 kg

DRUGS (15)
  1. FLONASE [Suspect]
     Indication: SINUSITIS
     Dosage: 1SPR TWICE PER DAY
     Route: 045
     Dates: start: 2003, end: 20121215
  2. FLOVENT [Suspect]
     Indication: ASTHMA
     Dosage: 2PUFF TWICE PER DAY
     Route: 055
  3. ALBUTEROL [Suspect]
     Indication: ASTHMA
     Route: 055
     Dates: start: 2003
  4. KEPPRA [Suspect]
     Indication: EPILEPSY
     Dosage: 1500MG TWICE PER DAY
     Route: 065
     Dates: start: 2000
  5. PRISTIQ [Suspect]
     Indication: POST-TRAUMATIC STRESS DISORDER
     Dosage: 50MG PER DAY
     Route: 065
     Dates: start: 2004
  6. TRAZODONE [Suspect]
     Indication: INSOMNIA
     Dosage: 100MG AS REQUIRED
     Route: 065
     Dates: start: 2002
  7. SINGULAIR [Suspect]
     Indication: ASTHMA
     Dosage: 10MG PER DAY
     Route: 065
     Dates: start: 2004
  8. BIAXIN [Suspect]
     Indication: BRONCHITIS
     Route: 065
     Dates: start: 20121201, end: 20121205
  9. SUDAFED [Suspect]
     Indication: SINUS CONGESTION
     Route: 065
     Dates: start: 2010
  10. TEMAZEPAM [Concomitant]
  11. FIORICET [Concomitant]
  12. VITAMIN D [Concomitant]
  13. MULTIVITAMIN [Concomitant]
  14. AMOXICILLIN [Concomitant]
  15. PREDNISONE [Concomitant]

REACTIONS (7)
  - Pre-eclampsia [Recovered/Resolved]
  - Pyrexia [Unknown]
  - Infection [Unknown]
  - Epistaxis [Recovering/Resolving]
  - Induced labour [Recovered/Resolved]
  - Live birth [Unknown]
  - Exposure during pregnancy [Unknown]
